FAERS Safety Report 6334853-7 (Version None)
Quarter: 2009Q3

REPORT INFORMATION
  Report Type: 
  Country: None (occurrence: None)
  Receive Date: 20090826
  Receipt Date: 20090812
  Transmission Date: 20100115
  Serious: Yes (Other)
  Sender: FDA-Public Use
  Company Number: 2009AP003244

PATIENT
  Age: 54 Year
  Sex: Female

DRUGS (3)
  1. FLUOXETINE HCL [Suspect]
     Indication: OBSESSIVE-COMPULSIVE DISORDER
     Dosage: 60 MG; QD
  2. DIVALPROEX SODIUM [Concomitant]
  3. LORAZEPAM [Concomitant]

REACTIONS (7)
  - BRADYKINESIA [None]
  - EXTRAPYRAMIDAL DISORDER [None]
  - FALL [None]
  - HYPERTONIA [None]
  - PARKINSONIAN GAIT [None]
  - POSTURE ABNORMAL [None]
  - TREMOR [None]
